FAERS Safety Report 13270207 (Version 4)
Quarter: 2017Q1

REPORT INFORMATION
  Report Type: Spontaneous
  Country: DE (occurrence: DE)
  Receive Date: 20170224
  Receipt Date: 20170329
  Transmission Date: 20170428
  Serious: Yes (Hospitalization)
  Sender: FDA-Public Use
  Company Number: DE-BIOGEN-2017BI00354431

PATIENT
  Sex: Female

DRUGS (1)
  1. ZINBRYTA [Suspect]
     Active Substance: DACLIZUMAB
     Indication: RELAPSING-REMITTING MULTIPLE SCLEROSIS
     Route: 058
     Dates: start: 201610, end: 201611

REACTIONS (7)
  - Condition aggravated [Unknown]
  - B-lymphocyte count increased [Unknown]
  - Multiple sclerosis relapse [Not Recovered/Not Resolved]
  - Natural killer cell count decreased [Unknown]
  - Eosinophil count abnormal [Unknown]
  - Loss of consciousness [Not Recovered/Not Resolved]
  - Nuclear magnetic resonance imaging abnormal [Unknown]
